FAERS Safety Report 20194502 (Version 1)
Quarter: 2021Q4

REPORT INFORMATION
  Report Type: Spontaneous
  Country: US (occurrence: None)
  Receive Date: 20211216
  Receipt Date: 20211216
  Transmission Date: 20220303
  Serious: No
  Sender: FDA-Public Use
  Company Number: 2021A784512

PATIENT
  Age: 21187 Day
  Sex: Male
  Weight: 102.5 kg

DRUGS (9)
  1. IMFINZI [Suspect]
     Active Substance: DURVALUMAB
     Indication: Neoplasm malignant
     Route: 042
     Dates: start: 20210707, end: 20210811
  2. IMFINZI [Suspect]
     Active Substance: DURVALUMAB
     Indication: Non-small cell lung cancer stage IIIA
     Route: 042
     Dates: start: 20210707, end: 20210811
  3. METHIMAZOLE [Concomitant]
     Active Substance: METHIMAZOLE
  4. PROAIR HFA [Concomitant]
     Active Substance: ALBUTEROL SULFATE
  5. CLOBETASOL [Concomitant]
     Active Substance: CLOBETASOL
  6. DESONIDE [Concomitant]
     Active Substance: DESONIDE
  7. TRIAMCINOLONE OINTMENT [Concomitant]
  8. VITAMIN C [Concomitant]
     Active Substance: ASCORBIC ACID
  9. VITAMIN B12 [Concomitant]
     Active Substance: CYANOCOBALAMIN

REACTIONS (7)
  - Rash [Recovered/Resolved]
  - Radioimmunotherapy [Recovering/Resolving]
  - Ear infection [Recovered/Resolved]
  - Nausea [Unknown]
  - Fatigue [Unknown]
  - Decreased appetite [Unknown]
  - Weight decreased [Unknown]

NARRATIVE: CASE EVENT DATE: 20211006
